FAERS Safety Report 15470761 (Version 1)
Quarter: 2018Q4

REPORT INFORMATION
  Report Type: Report from Study
  Country: GB (occurrence: GB)
  Receive Date: 20181005
  Receipt Date: 20181005
  Transmission Date: 20190205
  Serious: Yes (Other)
  Sender: FDA-Public Use
  Company Number: GB-BIOMARINAP-GB-2018-120083

PATIENT
  Age: 6 Year
  Sex: Male
  Weight: 35.9 kg

DRUGS (1)
  1. NAGLAZYME [Suspect]
     Active Substance: GALSULFASE
     Indication: MUCOPOLYSACCHARIDOSIS VI
     Dosage: 30 MILLIGRAM, QW
     Route: 042
     Dates: start: 20150902

REACTIONS (1)
  - Cervical cord compression [Not Recovered/Not Resolved]

NARRATIVE: CASE EVENT DATE: 20161111
